FAERS Safety Report 7989924-6 (Version None)
Quarter: 2011Q4

REPORT INFORMATION
  Report Type: 
  Country: None (occurrence: None)
  Receive Date: 20111215
  Receipt Date: 20111201
  Transmission Date: 20120403
  Serious: Yes (Other)
  Sender: FDA-Public Use
  Company Number: 2011IP000193

PATIENT
  Age: 60 Year
  Sex: Female

DRUGS (2)
  1. BROMDAY [Suspect]
     Indication: CATARACT OPERATION
     Dosage: 1 GTT;QD;OPH
     Route: 047
     Dates: start: 20111118, end: 20111125
  2. DUREZOL [Suspect]
     Indication: CATARACT OPERATION
     Dosage: OPH
     Route: 047
     Dates: start: 20111118, end: 20111125

REACTIONS (4)
  - AMNIOTIC MEMBRANE GRAFT [None]
  - ULCERATIVE KERATITIS [None]
  - CORNEAL DISORDER [None]
  - GRAFT COMPLICATION [None]
